FAERS Safety Report 4317462-0 (Version None)
Quarter: 2004Q1

REPORT INFORMATION
  Report Type: 
  Country: None (occurrence: None)
  Receive Date: 20040312
  Receipt Date: 20040305
  Transmission Date: 20041129
  Serious: Yes (Hospitalization)
  Sender: FDA-Public Use
  Company Number: HQ5127308NOV2002

PATIENT
  Age: 38 Year
  Sex: Female

DRUGS (2)
  1. DIMETAPP [Suspect]
     Dosage: ORAL
     Route: 048
     Dates: start: 20000919
  2. DEXATRIM (CAFFEINE/PHENYLPROPANOLAMINE  HYDROCHLORIDE) [Suspect]
     Dosage: ORAL
     Route: 048
     Dates: start: 20000919

REACTIONS (6)
  - AFFECT LABILITY [None]
  - AMNESIA [None]
  - CEREBROVASCULAR SPASM [None]
  - DEPRESSION [None]
  - INTRACRANIAL ANEURYSM [None]
  - SUBARACHNOID HAEMORRHAGE [None]
